FAERS Safety Report 12353092 (Version 2)
Quarter: 2016Q4

REPORT INFORMATION
  Report Type: Spontaneous
  Country: US (occurrence: US)
  Receive Date: 20160510
  Receipt Date: 20161111
  Transmission Date: 20170207
  Serious: Yes (Other)
  Sender: FDA-Public Use
  Company Number: US-ELI_LILLY_AND_COMPANY-US201605000588

PATIENT
  Sex: Female

DRUGS (2)
  1. CYMBALTA [Suspect]
     Active Substance: DULOXETINE HYDROCHLORIDE
     Indication: PAIN
     Dosage: UNK UNK, UNKNOWN
     Route: 065
  2. CYMBALTA [Suspect]
     Active Substance: DULOXETINE HYDROCHLORIDE
     Indication: DEPRESSION
     Dosage: 60 MG, UNKNOWN
     Route: 065

REACTIONS (11)
  - Dysphoria [Unknown]
  - Agitation [Unknown]
  - Drug withdrawal syndrome [Unknown]
  - Headache [Unknown]
  - Irritability [Unknown]
  - Vomiting [Unknown]
  - Mood swings [Unknown]
  - Suicidal ideation [Unknown]
  - Suicide attempt [Unknown]
  - Nausea [Unknown]
  - Anxiety [Unknown]
